FAERS Safety Report 9821759 (Version 1)
Quarter: 2014Q1

REPORT INFORMATION
  Report Type: Report from Study
  Country: US (occurrence: US)
  Receive Date: 20140116
  Receipt Date: 20140116
  Transmission Date: 20141002
  Serious: Yes (Death)
  Sender: FDA-Public Use
  Company Number: US-PFIZER INC-2014008380

PATIENT
  Age: 37 Year
  Sex: Male

DRUGS (17)
  1. INOTUZUMAB OZOGAMICIN [Suspect]
     Indication: ACUTE LYMPHOCYTIC LEUKAEMIA
     Dosage: 1.8 MG/M2, CYCLIC (DAY 3)
     Route: 042
     Dates: end: 201312
  2. CYTARABINE [Suspect]
     Dosage: UNK, CYCLIC (HVAD VARIOUS DAY 1-14)
     Route: 042
  3. DEXAMETHASONE SODIUM PHOSPHATE [Suspect]
     Dosage: UNK, CYCLIC (HVAD VARIOUS DAY 1-14)
     Route: 042
  4. METHOTREXATE SODIUM [Suspect]
     Dosage: UNK, CYCLIC (HVAD VARIOUS DAY 1-14)
     Route: 042
  5. CYCLOPHOSPHAMIDE [Suspect]
     Dosage: UNK, CYCLIC (HVAD VARIOUS DAY 1-14)
     Route: 042
  6. VINCRISTINE [Suspect]
     Dosage: UNK, CYCLIC (HVAD VARIOUS DAY 1-14)
     Route: 042
  7. PEGFILGRASTIM [Suspect]
     Dosage: UNK, CYCLIC (HVAD VARIOUS DAY 1-14)
     Route: 042
  8. FENTANYL PATCH [Concomitant]
     Dosage: UNK
  9. VANTIN [Concomitant]
     Dosage: UNK
  10. CANCIDAS [Concomitant]
     Dosage: UNK
  11. AMIODARONE [Concomitant]
     Dosage: UNK
  12. VALTREX [Concomitant]
     Dosage: UNK
  13. TOPROL XL [Concomitant]
     Dosage: UNK
  14. NORVASC [Concomitant]
     Dosage: UNK
  15. PROTONIX [Concomitant]
     Dosage: UNK
  16. XANAX [Concomitant]
     Dosage: UNK
  17. ZANAFLEX [Concomitant]
     Dosage: UNK

REACTIONS (1)
  - Death [Fatal]
